FAERS Safety Report 17451516 (Version 1)
Quarter: 2020Q1

REPORT INFORMATION
  Report Type: Spontaneous
  Country: US (occurrence: US)
  Receive Date: 20200223
  Receipt Date: 20200223
  Transmission Date: 20200409
  Serious: Yes (Other)
  Sender: FDA-Public Use
  Company Number: None

PATIENT
  Age: 72 Year
  Sex: Female

DRUGS (1)
  1. MOXIFLOXACIN. [Suspect]
     Active Substance: MOXIFLOXACIN
     Indication: ENDOPHTHALMITIS
     Dosage: ?          OTHER FREQUENCY:SINGLE USE;OTHER ROUTE:INTRACAMERAL?
     Dates: start: 20200211, end: 20200211

REACTIONS (1)
  - Corneal oedema [None]

NARRATIVE: CASE EVENT DATE: 20200211
